FAERS Safety Report 6510264-6 (Version None)
Quarter: 2009Q4

REPORT INFORMATION
  Report Type: 
  Country: None (occurrence: None)
  Receive Date: 20091222
  Receipt Date: 20091214
  Transmission Date: 20100525
  Serious: Yes (Hospitalization)
  Sender: FDA-Public Use
  Company Number: BR-WYE-H12652309

PATIENT
  Sex: Male

DRUGS (3)
  1. TYGACIL [Suspect]
     Indication: ABDOMINAL INFECTION
     Dosage: 50 MG, FREQUENCY UNKNOWN
     Route: 042
     Dates: start: 20090101, end: 20090101
  2. ECALTA [Suspect]
     Indication: INFECTION PROPHYLAXIS
     Dosage: UNKNOWN
     Dates: start: 20090101, end: 20090101
  3. MEROPENEM [Suspect]
     Indication: ABDOMINAL INFECTION
     Route: 042
     Dates: start: 20090101, end: 20090101

REACTIONS (5)
  - ALANINE AMINOTRANSFERASE INCREASED [None]
  - ASPARTATE AMINOTRANSFERASE INCREASED [None]
  - BLOOD ALKALINE PHOSPHATASE INCREASED [None]
  - DRUG INEFFECTIVE [None]
  - GAMMA-GLUTAMYLTRANSFERASE INCREASED [None]
